FAERS Safety Report 11466879 (Version 4)
Quarter: 2019Q1

REPORT INFORMATION
  Report Type: Report from Study
  Country: BR (occurrence: BR)
  Receive Date: 20150908
  Receipt Date: 20190325
  Transmission Date: 20190417
  Serious: Yes (Other)
  Sender: FDA-Public Use
  Company Number: BR-ROCHE-1630273

PATIENT
  Age: 38 Year
  Sex: Female
  Weight: 58 kg

DRUGS (17)
  1. KETOPROFEN. [Concomitant]
     Active Substance: KETOPROFEN
     Indication: ARTHRALGIA
     Dosage: 1 TABLET IN THE MORNING AND AT NIGHT
     Route: 065
  2. PARACETAMOL [Concomitant]
     Active Substance: ACETAMINOPHEN
     Indication: ARTHRALGIA
     Dosage: 1 TABLET IN THE MORNING AND AT NIGHT
     Route: 065
  3. DEFLAZACORT [Concomitant]
     Active Substance: DEFLAZACORT
     Indication: ARTHRALGIA
     Dosage: 1 TABLET IN THE MORNING AND AT NIGHT
     Route: 065
  4. ACTEMRA [Suspect]
     Active Substance: TOCILIZUMAB
     Indication: RHEUMATOID ARTHRITIS
     Dosage: LATEST RECEIVED INFUSION: 22/JUN/2017, 01/SEP/2018
     Route: 042
     Dates: start: 20150701
  5. PREDNISONE. [Concomitant]
     Active Substance: PREDNISONE
     Indication: RHEUMATOID ARTHRITIS
     Route: 065
  6. DIENOGEST [Concomitant]
     Active Substance: DIENOGEST
     Indication: CONTRACEPTION
     Route: 065
  7. FAMOTIDINE. [Concomitant]
     Active Substance: FAMOTIDINE
     Indication: ARTHRALGIA
     Dosage: 1 TABLET IN THE MORNING AND AT NIGHT
     Route: 065
  8. SULFASALAZINE. [Concomitant]
     Active Substance: SULFASALAZINE
     Indication: RHEUMATOID ARTHRITIS
     Dosage: 500
     Route: 065
  9. AEROLIN [Concomitant]
     Active Substance: ALBUTEROL
     Indication: ASTHMA
     Route: 065
  10. CODEINE [Concomitant]
     Active Substance: CODEINE
     Indication: ARTHRALGIA
     Dosage: 1 TABLET IN THE MORNING AND AT NIGHT
     Route: 065
  11. NIMESULIDE [Concomitant]
     Active Substance: NIMESULIDE
     Indication: RHEUMATOID ARTHRITIS
     Route: 065
  12. AMITRIPTYLINE [Concomitant]
     Active Substance: AMITRIPTYLINE
     Indication: MUSCLE RELAXANT THERAPY
     Route: 065
  13. FAMOTIDINE. [Concomitant]
     Active Substance: FAMOTIDINE
     Indication: RHEUMATOID ARTHRITIS
  14. DEFLAZACORT [Concomitant]
     Active Substance: DEFLAZACORT
     Indication: INFLAMMATION
     Route: 065
  15. KETOPROFEN. [Concomitant]
     Active Substance: KETOPROFEN
     Indication: ARTHRITIS
  16. CODEINE [Concomitant]
     Active Substance: CODEINE
     Indication: RHEUMATOID ARTHRITIS
  17. OMEPRAZOLE. [Concomitant]
     Active Substance: OMEPRAZOLE
     Route: 065

REACTIONS (8)
  - Dermatitis allergic [Not Recovered/Not Resolved]
  - Arthropathy [Not Recovered/Not Resolved]
  - Joint swelling [Not Recovered/Not Resolved]
  - Malaise [Recovered/Resolved]
  - Nausea [Recovered/Resolved]
  - Liver disorder [Recovered/Resolved]
  - Ill-defined disorder [Not Recovered/Not Resolved]
  - Foot deformity [Not Recovered/Not Resolved]

NARRATIVE: CASE EVENT DATE: 20170720
